FAERS Safety Report 4884505-5 (Version None)
Quarter: 2006Q1

REPORT INFORMATION
  Report Type: 
  Country: None (occurrence: None)
  Receive Date: 20060117
  Receipt Date: 20060110
  Transmission Date: 20060701
  Serious: Yes (Death, Life-Threatening, Other)
  Sender: FDA-Public Use
  Company Number: 2005003898

PATIENT
  Age: 53 Year
  Sex: Male
  Weight: 113.8529 kg

DRUGS (14)
  1. ACCUPRIL [Suspect]
     Indication: HYPERTENSION
     Dosage: 20 MG (1 D)
     Dates: start: 20030821, end: 20030911
  2. HYDROCHLOROTHIAZIDE [Suspect]
     Indication: ILL-DEFINED DISORDER
     Dosage: 12.5 MG (12.5 MG, 1 IN 1 D); 6.25 MG (12.5 MG, 1/2 TABLET DAILY), ORAL
     Route: 048
     Dates: start: 20030828, end: 20030903
  3. HYDROCHLOROTHIAZIDE [Suspect]
     Indication: ILL-DEFINED DISORDER
     Dosage: 12.5 MG (12.5 MG, 1 IN 1 D); 6.25 MG (12.5 MG, 1/2 TABLET DAILY), ORAL
     Route: 048
     Dates: start: 20030904, end: 20030911
  4. CLOZARIL [Suspect]
     Indication: SCHIZOPHRENIA
     Dosage: 500 MG (100 MG, 100 MG AM, 400 MG PM), ORAL
     Route: 048
     Dates: start: 20001128, end: 20030911
  5. DEPAKOTE [Concomitant]
  6. FELDENE [Concomitant]
  7. DITROPAN [Concomitant]
  8. BISACODYL (BISACODYL) [Concomitant]
  9. BACLOFEN [Concomitant]
  10. LACTULOSE [Concomitant]
  11. ASPIRIN [Concomitant]
  12. VITAMINS (VITAMINS) [Concomitant]
  13. CALCIUM (CALCIUM) [Concomitant]
  14. METAMUCIL ^PROCTOR + GAMBLE^ (GLUCOSE MONOHYDRATE, ISPAGHULA HUSK) [Concomitant]

REACTIONS (5)
  - ACCIDENT [None]
  - CONVULSION [None]
  - DRUG INTERACTION [None]
  - DRUG TOXICITY [None]
  - PULMONARY CONGESTION [None]
